FAERS Safety Report 5301876-6 (Version None)
Quarter: 2007Q2

REPORT INFORMATION
  Report Type: 
  Country: None (occurrence: None)
  Receive Date: 20070419
  Receipt Date: 20070411
  Transmission Date: 20071010
  Serious: Yes (Other)
  Sender: FDA-Public Use
  Company Number: US-ROCHE-492344

PATIENT
  Sex: Female

DRUGS (2)
  1. CELLCEPT [Suspect]
     Route: 065
  2. UNSPECIFIED MEDICATIONS [Concomitant]
     Dosage: REPORTED AS 9 UNSPECIFIED MEDICATIONS

REACTIONS (1)
  - MYOCARDIAL INFARCTION [None]
